FAERS Safety Report 5593718-9 (Version None)
Quarter: 2008Q1

REPORT INFORMATION
  Report Type: 
  Country: None (occurrence: None)
  Receive Date: 20080116
  Receipt Date: 20080104
  Transmission Date: 20080703
  Serious: Yes (Hospitalization)
  Sender: FDA-Public Use
  Company Number: CA-ELI_LILLY_AND_COMPANY-CA200708000183

PATIENT
  Age: 47 Year
  Sex: Female

DRUGS (16)
  1. FORTEO [Suspect]
     Indication: OSTEOPOROSIS
     Dosage: 20 UG, DAILY (1/D)
     Route: 058
     Dates: start: 20070618
  2. ATENOLOL [Concomitant]
  3. PANTOLOC /01263201/ [Concomitant]
  4. MOTILIUM [Concomitant]
  5. CARBOCAL D [Concomitant]
  6. LYRICA [Concomitant]
  7. CELEXA [Concomitant]
  8. ATIVAN [Concomitant]
  9. BIAXIN [Concomitant]
  10. VANCOMYCIN [Concomitant]
  11. SENOKOT [Concomitant]
  12. SERAX [Concomitant]
  13. COUMADIN [Concomitant]
  14. IRON [Concomitant]
  15. GRAVOL TAB [Concomitant]
  16. DILAUDID [Concomitant]

REACTIONS (3)
  - HOSPITALISATION [None]
  - IMMUNOSUPPRESSION [None]
  - PNEUMONIA [None]
